FAERS Safety Report 4358011-0 (Version None)
Quarter: 2004Q2

REPORT INFORMATION
  Report Type: 
  Country: None (occurrence: None)
  Receive Date: 20040510
  Receipt Date: 20040319
  Transmission Date: 20050107
  Serious: Yes (Disabling)
  Sender: FDA-Public Use
  Company Number: MK200405-0046-1

PATIENT
  Age: 43 Year
  Sex: Female

DRUGS (1)
  1. I-131 [Suspect]
     Indication: THYROID GLAND CANCER
     Dosage: ONE, PO
     Route: 048

REACTIONS (2)
  - DACRYOSTENOSIS ACQUIRED [None]
  - LACRIMATION INCREASED [None]
